FAERS Safety Report 23989817 (Version 1)
Quarter: 2024Q2

REPORT INFORMATION
  Report Type: Spontaneous
  Country: US (occurrence: US)
  Receive Date: 20240619
  Receipt Date: 20240619
  Transmission Date: 20240716
  Serious: Yes (Other)
  Sender: FDA-Public Use
  Company Number: US-Calliditas-2024CAL01057

PATIENT
  Age: 62 Year
  Sex: Female
  Weight: 79.4 kg

DRUGS (1)
  1. TARPEYO [Suspect]
     Active Substance: BUDESONIDE
     Indication: IgA nephropathy
     Route: 048
     Dates: start: 20240221, end: 20240611

REACTIONS (2)
  - End stage renal disease [Unknown]
  - Dialysis [Unknown]
